FAERS Safety Report 25403424 (Version 1)
Quarter: 2025Q2

REPORT INFORMATION
  Report Type: Spontaneous
  Country: TR (occurrence: TR)
  Receive Date: 20250605
  Receipt Date: 20250605
  Transmission Date: 20250717
  Serious: Yes (Hospitalization)
  Sender: MERCK SHARP & DOHME LLC
  Company Number: TR-009507513-2289723

PATIENT
  Sex: Male
  Weight: 85.9 kg

DRUGS (14)
  1. PEMBROLIZUMAB [Suspect]
     Active Substance: PEMBROLIZUMAB
     Indication: Non-small cell lung cancer metastatic
     Route: 042
     Dates: start: 20240524, end: 20240524
  2. PEMBROLIZUMAB [Suspect]
     Active Substance: PEMBROLIZUMAB
     Indication: Non-small cell lung cancer metastatic
     Route: 042
     Dates: start: 20240614, end: 20240614
  3. PEMBROLIZUMAB [Suspect]
     Active Substance: PEMBROLIZUMAB
     Indication: Non-small cell lung cancer metastatic
     Route: 042
     Dates: start: 20240705, end: 20240705
  4. CARBOPLATIN [Suspect]
     Active Substance: CARBOPLATIN
     Indication: Non-small cell lung cancer metastatic
     Route: 042
     Dates: start: 20240524, end: 20240524
  5. CARBOPLATIN [Suspect]
     Active Substance: CARBOPLATIN
     Indication: Non-small cell lung cancer metastatic
     Route: 042
     Dates: start: 20240614, end: 20240614
  6. CARBOPLATIN [Suspect]
     Active Substance: CARBOPLATIN
     Indication: Non-small cell lung cancer metastatic
     Route: 042
     Dates: start: 20240705, end: 20240705
  7. PACLITAXEL [Suspect]
     Active Substance: PACLITAXEL
     Indication: Non-small cell lung cancer metastatic
     Route: 042
     Dates: start: 20240524, end: 20240524
  8. PACLITAXEL [Suspect]
     Active Substance: PACLITAXEL
     Indication: Non-small cell lung cancer metastatic
     Route: 042
     Dates: start: 20240614, end: 20240614
  9. PACLITAXEL [Suspect]
     Active Substance: PACLITAXEL
     Indication: Non-small cell lung cancer metastatic
     Route: 042
     Dates: start: 20240705, end: 20240705
  10. ARLEC (CARVEDILOL) [Concomitant]
     Route: 065
     Dates: start: 2021
  11. ECOPIRIN (ACETYLSALICYLIC ACID) [Concomitant]
     Route: 065
     Dates: start: 2021
  12. KARUM (CLOPIDOGREL BISULFATE) [Concomitant]
     Route: 065
  13. TRIPLIXAM (AMLODIPINE BESILATE, INDAPAMIDE, PERINDOPRIL ARGININE) [Concomitant]
     Route: 065
     Dates: start: 2021
  14. GRANEXA (GRANISETRON HYDROCHLORIDE) [Concomitant]
     Route: 065
     Dates: start: 20240614

REACTIONS (2)
  - Gastroenteritis [Recovered/Resolved]
  - Neutrophil count decreased [Recovered/Resolved]

NARRATIVE: CASE EVENT DATE: 20240713
